FAERS Safety Report 12659278 (Version 1)
Quarter: 2016Q3

REPORT INFORMATION
  Report Type: Report from Study
  Country: CO (occurrence: CO)
  Receive Date: 20160817
  Receipt Date: 20160817
  Transmission Date: 20161109
  Serious: Yes (Hospitalization)
  Sender: FDA-Public Use
  Company Number: CO-JNJFOC-20160806919

PATIENT
  Age: 44 Year
  Sex: Male
  Weight: 78 kg

DRUGS (2)
  1. SIMPONI [Suspect]
     Active Substance: GOLIMUMAB
     Indication: ANKYLOSING SPONDYLITIS
     Route: 058
     Dates: start: 20160701
  2. SIMPONI [Suspect]
     Active Substance: GOLIMUMAB
     Indication: ANKYLOSING SPONDYLITIS
     Route: 058
     Dates: start: 20160602

REACTIONS (6)
  - Pyrexia [Recovering/Resolving]
  - Pain [Recovering/Resolving]
  - Arthritis [Recovering/Resolving]
  - Furuncle [Recovering/Resolving]
  - Joint swelling [Recovering/Resolving]
  - Injection site haematoma [Recovered/Resolved]

NARRATIVE: CASE EVENT DATE: 201607
